FAERS Safety Report 24307835 (Version 1)
Quarter: 2024Q3

REPORT INFORMATION
  Report Type: Report from Study
  Country: ZA (occurrence: None)
  Receive Date: 20240911
  Receipt Date: 20240911
  Transmission Date: 20241016
  Serious: Yes (Hospitalization)
  Sender: ASTRAZENECA
  Company Number: 2024A203969

PATIENT
  Age: 89 Year
  Sex: Male

DRUGS (4)
  1. DAPAGLIFLOZIN PROPANEDIOL [Suspect]
     Active Substance: DAPAGLIFLOZIN PROPANEDIOL
     Indication: Diabetes mellitus
     Dosage: 10.0MG UNKNOWN
     Route: 048
  2. PURBAC ADULT [Concomitant]
     Indication: Acne
  3. LIPOGEN [Concomitant]
     Indication: Blood cholesterol
     Dosage: 10.0MG UNKNOWN
  4. PENDINE [Concomitant]
     Indication: Hypertension

REACTIONS (1)
  - Renal failure [Unknown]
